FAERS Safety Report 5863821-4 (Version None)
Quarter: 2008Q3

REPORT INFORMATION
  Report Type: 
  Country: None (occurrence: None)
  Receive Date: 20080827
  Receipt Date: 20080814
  Transmission Date: 20090109
  Serious: Yes (Other)
  Sender: FDA-Public Use
  Company Number: 2008US002152

PATIENT
  Age: 65 Year
  Sex: Female

DRUGS (1)
  1. LEXISCAN [Suspect]
     Indication: SCAN MYOCARDIAL PERFUSION
     Dosage: 0.4 MG, IV NOS
     Route: 042
     Dates: start: 20080814, end: 20080814

REACTIONS (7)
  - ARTHRALGIA [None]
  - ASTHENIA [None]
  - DISCOMFORT [None]
  - DRUG INTERACTION [None]
  - MIGRAINE [None]
  - MYALGIA [None]
  - RESTLESSNESS [None]
